FAERS Safety Report 7077284-7 (Version None)
Quarter: 2010Q4

REPORT INFORMATION
  Report Type: 
  Country: None (occurrence: None)
  Receive Date: 20101022
  Receipt Date: 20101006
  Transmission Date: 20110411
  Serious: Yes (Hospitalization, Other)
  Sender: FDA-Public Use
  Company Number: 2010SA061582

PATIENT
  Age: 58 Year
  Sex: Male

DRUGS (8)
  1. PLAVIX [Suspect]
     Indication: STENT PLACEMENT
     Dosage: 75 MILLIGRAM(S); DAILY; ORAL
     Route: 048
     Dates: start: 20090101
  2. PLAVIX [Suspect]
     Indication: STENT PLACEMENT
     Dosage: 75 MILLIGRAM(S); DAILY; ORAL
     Route: 048
     Dates: start: 20090101
  3. COCAINE [Suspect]
     Dates: start: 20090801, end: 20090801
  4. ASPIRIN [Concomitant]
  5. BENADRYL [Concomitant]
  6. SIMVASTATIN [Concomitant]
  7. COREG [Concomitant]
  8. ENALAPRIL [Concomitant]

REACTIONS (4)
  - ARRHYTHMIA [None]
  - CHEST PAIN [None]
  - MYOCARDIAL INFARCTION [None]
  - THROMBOSIS [None]
